FAERS Safety Report 10086870 (Version 3)
Quarter: 2014Q2

REPORT INFORMATION
  Report Type: Spontaneous
  Country: IT (occurrence: IT)
  Receive Date: 20140418
  Receipt Date: 20140508
  Transmission Date: 20141212
  Serious: Yes (Hospitalization)
  Sender: FDA-Public Use
  Company Number: IT-ABBVIE-14K-083-1227502-00

PATIENT
  Age: 30 Year
  Sex: Male
  Weight: 75 kg

DRUGS (4)
  1. SEVORANE [Suspect]
     Indication: ANAESTHESIA
     Route: 055
     Dates: start: 20140410, end: 20140410
  2. MIDARINE [Interacting]
     Indication: PRODUCT USED FOR UNKNOWN INDICATION
     Route: 040
     Dates: start: 20140410, end: 20140410
  3. DIPRIVAN [Concomitant]
     Indication: PRODUCT USED FOR UNKNOWN INDICATION
     Route: 041
     Dates: start: 20140410, end: 20140410
  4. FENTANEST [Concomitant]
     Indication: PRODUCT USED FOR UNKNOWN INDICATION
     Route: 042
     Dates: start: 20140410, end: 20140410

REACTIONS (2)
  - Rhabdomyolysis [Unknown]
  - Drug interaction [Unknown]
